FAERS Safety Report 25746016 (Version 1)
Quarter: 2025Q3

REPORT INFORMATION
  Report Type: Spontaneous
  Country: CN (occurrence: CN)
  Receive Date: 20250901
  Receipt Date: 20250901
  Transmission Date: 20251020
  Serious: Yes (Life-Threatening, Hospitalization, Other)
  Sender: BAXTER
  Company Number: None

PATIENT
  Age: 60 Year
  Sex: Male
  Weight: 64 kg

DRUGS (10)
  1. CYCLOPHOSPHAMIDE [Suspect]
     Active Substance: CYCLOPHOSPHAMIDE
     Indication: Lymphoma
     Dosage: 1.29 G, QD WITH 0.9% SODIUM CHLORIDE INJECTION 250 ML DAY 1
     Route: 041
     Dates: start: 20250809, end: 20250809
  2. RITUXIMAB [Suspect]
     Active Substance: RITUXIMAB
     Indication: Lymphoma
     Dosage: 650 ML, QD WITH 0.9% SODIUM CHLORIDE INJECTION 650 ML DAY 0
     Route: 041
     Dates: start: 20250808, end: 20250808
  3. DOXORUBICIN HYDROCHLORIDE [Suspect]
     Active Substance: DOXORUBICIN HYDROCHLORIDE
     Indication: Lymphoma
     Dosage: 86 MG, QD WITH STERILE WATER FOR INJECTION 43ML DAY 1
     Route: 042
     Dates: start: 20250809, end: 20250809
  4. VINCRISTINE SULFATE [Suspect]
     Active Substance: VINCRISTINE SULFATE
     Indication: Lymphoma
     Dosage: 2 MG, QD WITH 0.9% SODIUM CHLORIDE INJECTION 50 ML DAY 1
     Route: 041
     Dates: start: 20250809, end: 20250809
  5. METHYLPREDNISOLONE SODIUM SUCCINATE [Suspect]
     Active Substance: METHYLPREDNISOLONE SODIUM SUCCINATE
     Indication: Lymphoma
     Dosage: 80 MG, QD + 0.9% SODIUM CHLORIDE INJECTION 100 ML ON DAY1- 5
     Route: 041
     Dates: start: 20250809, end: 20250813
  6. SODIUM CHLORIDE [Suspect]
     Active Substance: SODIUM CHLORIDE
     Indication: Medication dilution
     Dosage: 250 ML, QD + CYCLOPHOSPHAMIDE FOR INJECTION 1.29 G DAY 1
     Route: 041
     Dates: start: 20250809, end: 20250809
  7. SODIUM CHLORIDE [Suspect]
     Active Substance: SODIUM CHLORIDE
     Dosage: 50 ML, QD + VINCRISTINE SULFATE FOR INJECTION 2 MG DAY 1
     Route: 041
     Dates: start: 20250809, end: 20250809
  8. SODIUM CHLORIDE [Suspect]
     Active Substance: SODIUM CHLORIDE
     Dosage: 100 ML, QD + METHYLPREDNISOLONE SODIUM SUCCINATE FOR INJECTION 80 MG DAY 1
     Route: 041
     Dates: start: 20250809, end: 20250813
  9. SODIUM CHLORIDE [Suspect]
     Active Substance: SODIUM CHLORIDE
     Indication: Medication dilution
     Dosage: 650 ML, QD + RITUXIMAB INJECTION 650 MG DAY 0
     Route: 041
     Dates: start: 20250808, end: 20250808
  10. STERILE WATER [Suspect]
     Active Substance: WATER
     Indication: Medication dilution
     Dosage: 43 ML, QD WITH DOXORUBICIN HYDROCHLORIDE FOR INJECTION 86 MG DAY 1
     Route: 042
     Dates: start: 20250809, end: 20250809

REACTIONS (10)
  - Agranulocytosis [Recovering/Resolving]
  - White blood cell count decreased [Recovering/Resolving]
  - Neutropenia [Recovered/Resolved]
  - Granulocytopenia [Recovering/Resolving]
  - Gastrointestinal infection [Recovering/Resolving]
  - Plesiomonas shigelloides infection [Unknown]
  - Nausea [Unknown]
  - Vomiting [Unknown]
  - Diarrhoea [Recovered/Resolved]
  - Abdominal pain [Recovered/Resolved]

NARRATIVE: CASE EVENT DATE: 20250817
